FAERS Safety Report 11145288 (Version 1)
Quarter: 2015Q2

REPORT INFORMATION
  Report Type: Spontaneous
  Country: US (occurrence: None)
  Receive Date: 20150527
  Receipt Date: 20150527
  Transmission Date: 20150821
  Serious: Yes (Hospitalization)
  Sender: FDA-Public Use
  Company Number: None

PATIENT
  Age: 63 Year
  Sex: Female
  Weight: 92.08 kg

DRUGS (2)
  1. CARBOPLATIN. [Suspect]
     Active Substance: CARBOPLATIN
  2. TAXOL [Suspect]
     Active Substance: PACLITAXEL

REACTIONS (7)
  - Constipation [None]
  - Haemoglobin decreased [None]
  - Endometrial adenocarcinoma [None]
  - Dyspnoea exertional [None]
  - Nausea [None]
  - Abdominal pain [None]
  - Malignant neoplasm progression [None]

NARRATIVE: CASE EVENT DATE: 20150519
